FAERS Safety Report 20058886 (Version 1)
Quarter: 2021Q4

REPORT INFORMATION
  Report Type: Spontaneous
  Country: US (occurrence: None)
  Receive Date: 20211111
  Receipt Date: 20211111
  Transmission Date: 20220303
  Serious: No
  Sender: FDA-Public Use
  Company Number: None

PATIENT
  Sex: Male

DRUGS (1)
  1. FULPHILA [Suspect]
     Active Substance: PEGFILGRASTIM-JMDB
     Indication: Bladder cancer
     Dosage: OTHER FREQUENCY : EVERY 3 WEEKS;?
     Route: 058
     Dates: start: 20211013

REACTIONS (1)
  - Cellulitis [None]
